FAERS Safety Report 6065148-7 (Version None)
Quarter: 2009Q1

REPORT INFORMATION
  Report Type: 
  Country: None (occurrence: None)
  Receive Date: 20090130
  Receipt Date: 20090122
  Transmission Date: 20090719
  Serious: Yes (Other)
  Sender: FDA-Public Use
  Company Number: 2009SP001538

PATIENT
  Age: 53 Year
  Sex: Female
  Weight: 75.5 kg

DRUGS (6)
  1. POSACONAZOLE [Suspect]
     Indication: ACUTE MYELOID LEUKAEMIA
     Dosage: 5 ML TID PO
     Route: 048
     Dates: start: 20090110, end: 20090121
  2. TINIDAZOLE (TINIDAZOLE) [Suspect]
     Indication: INFECTION
     Dosage: 0.5 GM QD PO
     Route: 048
     Dates: start: 20090116
  3. CEFTAZIDIME [Suspect]
     Indication: INFECTION
     Dosage: 2 GM BID IV
     Route: 042
     Dates: start: 20090116
  4. CYTARABINE [Concomitant]
  5. MITOXANTRONE [Concomitant]
  6. ONDANSETRON [Concomitant]

REACTIONS (5)
  - EYELID OEDEMA [None]
  - FACE OEDEMA [None]
  - NO THERAPEUTIC RESPONSE [None]
  - RASH PRURITIC [None]
  - SWELLING FACE [None]
